FAERS Safety Report 18072787 (Version 1)
Quarter: 2020Q3

REPORT INFORMATION
  Report Type: Spontaneous
  Country: US (occurrence: US)
  Receive Date: 20200727
  Receipt Date: 20200727
  Transmission Date: 20201103
  Serious: No
  Sender: FDA-Public Use
  Company Number: US-SA-2020SA192253

PATIENT

DRUGS (4)
  1. VALIUM [Concomitant]
     Active Substance: DIAZEPAM
  2. LIPITOR [Concomitant]
     Active Substance: ATORVASTATIN CALCIUM
  3. AUBAGIO [Suspect]
     Active Substance: TERIFLUNOMIDE
     Indication: MULTIPLE SCLEROSIS
     Dosage: 14 MG, QD
     Route: 048
     Dates: start: 20190716
  4. VITAMIN D [VITAMIN D NOS] [Concomitant]
     Active Substance: VITAMIN D NOS

REACTIONS (2)
  - Temperature intolerance [Unknown]
  - Paraesthesia [Unknown]

NARRATIVE: CASE EVENT DATE: 20200722
